FAERS Safety Report 5702963-0 (Version None)
Quarter: 2008Q2

REPORT INFORMATION
  Report Type: 
  Country: None (occurrence: None)
  Receive Date: 20080408
  Receipt Date: 20080325
  Transmission Date: 20081010
  Serious: Yes (Other)
  Sender: FDA-Public Use
  Company Number: BR-1165586

PATIENT
  Age: 68 Year

DRUGS (5)
  1. FLORATE    (FLUOROMETHOLONE ACETATE) [Suspect]
     Indication: HYPERSENSITIVITY
     Dosage: 1 GTT OU Q4H X 15D, THEN Q6H X 30 D, THEN Q8H X 15 D, THEN QD X 15 D, OPHTHALMIC
     Route: 047
     Dates: start: 20071016, end: 20071220
  2. CAPTOPRIL [Concomitant]
  3. AAA (BENZOCAINE) [Concomitant]
  4. ATENOLOL [Concomitant]
     Dosage: 25MH QD PO
  5. SIBUTRAMINA      (SIBUTRAMINE HYDROCHLORIDE) [Concomitant]
     Dosage: 20MG QD PO

REACTIONS (5)
  - EYE IRRITATION [None]
  - FOREIGN BODY SENSATION IN EYES [None]
  - VISION BLURRED [None]
  - VISUAL ACUITY REDUCED [None]
  - VITREOUS DETACHMENT [None]
